FAERS Safety Report 6377829-6 (Version None)
Quarter: 2009Q3

REPORT INFORMATION
  Report Type: 
  Country: None (occurrence: None)
  Receive Date: 20090921
  Receipt Date: 20090915
  Transmission Date: 20100115
  Serious: Yes (Death, Congenital Anomaly, Other)
  Sender: FDA-Public Use
  Company Number: 2009US003481

PATIENT
  Sex: Female
  Weight: 2.2 kg

DRUGS (9)
  1. PROGRAF [Suspect]
     Indication: DRUG EXPOSURE DURING PREGNANCY
     Dosage: 5 MG, UID/QD
  2. MYCOPHENOLATE MOFETIL [Suspect]
     Indication: DRUG EXPOSURE DURING PREGNANCY
     Dosage: 250 MG, BID
  3. PREDNISONE TAB [Suspect]
     Indication: DRUG EXPOSURE DURING PREGNANCY
     Dosage: 5 MG, UID/QD
  4. NORVASC [Suspect]
     Indication: DRUG EXPOSURE DURING PREGNANCY
  5. METOPROLOL (METOPROLOL) [Suspect]
     Indication: DRUG EXPOSURE DURING PREGNANCY
  6. LASIX [Suspect]
     Indication: DRUG EXPOSURE DURING PREGNANCY
  7. EPOGEN [Concomitant]
  8. PRENATAL VITAMINS (VITAMIN D NOS, MINERALS NOS, VITAMIN B NOS) [Concomitant]
  9. ACYCLOVIR [Concomitant]

REACTIONS (32)
  - CEREBRAL HAEMORRHAGE NEONATAL [None]
  - CLEFT PALATE [None]
  - COARCTATION OF THE AORTA [None]
  - CONGENITAL CENTRAL NERVOUS SYSTEM ANOMALY [None]
  - CONGENITAL DIAPHRAGMATIC HERNIA [None]
  - CONGENITAL GENITOURINARY ABNORMALITY [None]
  - CONGENITAL HAND MALFORMATION [None]
  - CONGENITAL IRIS ANOMALY [None]
  - CONGENITAL NAIL DISORDER [None]
  - CONGENITAL SPINAL CORD ANOMALY [None]
  - CYANOSIS NEONATAL [None]
  - DEATH NEONATAL [None]
  - DYSMORPHISM [None]
  - EXTERNAL AUDITORY CANAL ATRESIA [None]
  - HEART DISEASE CONGENITAL [None]
  - HYPERTELORISM OF ORBIT [None]
  - INTERRUPTION OF AORTIC ARCH [None]
  - IRIS HYPERPIGMENTATION [None]
  - LOW SET EARS [None]
  - MATERNAL DRUGS AFFECTING FOETUS [None]
  - MICROTIA [None]
  - NIPPLE DISORDER [None]
  - OESOPHAGEAL ATRESIA [None]
  - PTERYGIUM COLLI [None]
  - PULMONARY HYPERTENSION [None]
  - PULMONARY HYPOPLASIA [None]
  - RETROGNATHIA [None]
  - TRACHEO-OESOPHAGEAL FISTULA [None]
  - UMBILICAL ARTERY HYPOPLASIA [None]
  - VASCULAR ANOMALY [None]
  - VENTRICULAR SEPTAL DEFECT [None]
  - VESICOURETERIC REFLUX [None]
